FAERS Safety Report 9316793 (Version 2)
Quarter: 2013Q2

REPORT INFORMATION
  Report Type: Spontaneous
  Country: US (occurrence: US)
  Receive Date: 20130530
  Receipt Date: 20130530
  Transmission Date: 20140414
  Serious: No
  Sender: FDA-Public Use
  Company Number: US-MYLANLABS-2013S1005718

PATIENT
  Age: 53 Year
  Sex: Female
  Weight: 56.7 kg

DRUGS (5)
  1. ZOLPIDEM TABLETS [Suspect]
     Indication: INSOMNIA
     Route: 048
  2. ZOLPIDEM TABLETS [Suspect]
     Indication: INSOMNIA
     Route: 048
     Dates: end: 201303
  3. CAFFEINE [Suspect]
     Route: 048
  4. XANAX [Concomitant]
     Indication: INSOMNIA
  5. VICODIN [Concomitant]
     Indication: PAIN

REACTIONS (7)
  - Abdominal pain [Recovered/Resolved]
  - Decreased appetite [Recovered/Resolved]
  - Pain [Not Recovered/Not Resolved]
  - Dry eye [Not Recovered/Not Resolved]
  - Hangover [Not Recovered/Not Resolved]
  - Asthenia [Not Recovered/Not Resolved]
  - Unevaluable event [Recovered/Resolved]
